FAERS Safety Report 4389047-1 (Version None)
Quarter: 2004Q2

REPORT INFORMATION
  Report Type: 
  Country: None (occurrence: None)
  Receive Date: 20040628
  Receipt Date: 20040614
  Transmission Date: 20050107
  Serious: Yes (Life-Threatening, Other)
  Sender: FDA-Public Use
  Company Number: HQWYE450215JUN04

PATIENT
  Age: 15 Year

DRUGS (4)
  1. EFFEXOR [Suspect]
  2. FEXOFENADINE HCL [Suspect]
  3. GEODON [Concomitant]
  4. CONCERTA (METHYPHENIDATE) [Concomitant]

REACTIONS (4)
  - CONDITION AGGRAVATED [None]
  - DEPRESSION [None]
  - PSYCHOTIC DISORDER [None]
  - SUICIDAL IDEATION [None]
